FAERS Safety Report 6137291-5 (Version None)
Quarter: 2009Q1

REPORT INFORMATION
  Report Type: 
  Country: None (occurrence: None)
  Receive Date: 20090330
  Receipt Date: 20090320
  Transmission Date: 20090719
  Serious: Yes (Other)
  Sender: FDA-Public Use
  Company Number: US-JNJCH-2009007770

PATIENT
  Age: 55 Year
  Sex: Male
  Weight: 72.6 kg

DRUGS (2)
  1. ROGAINE [Suspect]
     Indication: ALOPECIA
     Dosage: TEXT:6 SPRAYS 2 X A DAY
     Route: 061
  2. TOPROL-XL [Concomitant]
     Indication: BLOOD CHOLESTEROL
     Dosage: TEXT:50MG 1X A DAY
     Route: 065

REACTIONS (2)
  - ALOPECIA [None]
  - HEART VALVE REPLACEMENT [None]
